FAERS Safety Report 9554058 (Version 2)
Quarter: 2013Q3

REPORT INFORMATION
  Report Type: Spontaneous
  Country: US (occurrence: US)
  Receive Date: 20130925
  Receipt Date: 20130925
  Transmission Date: 20140515
  Serious: Yes (Other)
  Sender: FDA-Public Use
  Company Number: US-ELI_LILLY_AND_COMPANY-US201307010009

PATIENT
  Age: 58 Year
  Sex: Male

DRUGS (2)
  1. CYMBALTA [Suspect]
     Indication: ANXIETY
     Dosage: 30 MG, QD
     Route: 048
     Dates: start: 20130717, end: 20130719
  2. CYMBALTA [Suspect]
     Indication: DEPRESSION

REACTIONS (6)
  - Dyspnoea [Recovered/Resolved]
  - Suicidal ideation [Recovered/Resolved]
  - Feeling abnormal [Recovered/Resolved]
  - Confusional state [Recovered/Resolved]
  - Disorientation [Recovered/Resolved]
  - Heart rate increased [Recovered/Resolved]
